FAERS Safety Report 23847181 (Version 2)
Quarter: 2024Q2

REPORT INFORMATION
  Report Type: Spontaneous
  Country: US (occurrence: US)
  Receive Date: 20240513
  Receipt Date: 20240517
  Transmission Date: 20240716
  Serious: No
  Sender: FDA-Public Use
  Company Number: US-AMGEN-USASP2024093136

PATIENT
  Sex: Female

DRUGS (2)
  1. SENSIPAR [Suspect]
     Active Substance: CINACALCET HYDROCHLORIDE
     Indication: Hyperparathyroidism
     Dosage: 30 MICROGRAM
     Route: 065
  2. Magnesium + vitamin D3 with turmeric [Concomitant]

REACTIONS (2)
  - Product dose omission issue [Unknown]
  - Blood magnesium decreased [Unknown]
